FAERS Safety Report 20329903 (Version 11)
Quarter: 2025Q2

REPORT INFORMATION
  Report Type: Report from Study
  Country: JP (occurrence: JP)
  Receive Date: 20220113
  Receipt Date: 20250609
  Transmission Date: 20250717
  Serious: Yes (Other)
  Sender: TAKEDA
  Company Number: JP-TAKEDA-2021TJP136903

PATIENT
  Sex: Male

DRUGS (4)
  1. ADYNOVATE [Suspect]
     Active Substance: ANTIHEMOPHILIC FACTOR, HUMAN RECOMBINANT
     Indication: Factor VIII deficiency
  2. ADYNOVATE [Suspect]
     Active Substance: ANTIHEMOPHILIC FACTOR, HUMAN RECOMBINANT
     Indication: Haemostasis
     Dosage: 3000 INTERNATIONAL UNIT, 2/WEEK
  3. ADYNOVATE [Suspect]
     Active Substance: ANTIHEMOPHILIC FACTOR, HUMAN RECOMBINANT
  4. INFLUENZA VIRUS VACCINE [Concomitant]
     Active Substance: INFLUENZA VIRUS VACCINE
     Indication: Product used for unknown indication

REACTIONS (31)
  - Traumatic haemorrhage [Unknown]
  - Haemorrhage subcutaneous [Recovered/Resolved]
  - Subcutaneous haematoma [Recovered/Resolved]
  - Ligament sprain [Unknown]
  - Upper limb fracture [Unknown]
  - Hand fracture [Unknown]
  - Ligament injury [Unknown]
  - Onychomadesis [Unknown]
  - Neck pain [Unknown]
  - Fall [Unknown]
  - Limb discomfort [Unknown]
  - Back pain [Unknown]
  - Swelling [Unknown]
  - Migraine [Unknown]
  - Treatment noncompliance [Unknown]
  - Injection site pain [Unknown]
  - Discouragement [Unknown]
  - Myalgia [Unknown]
  - Forearm fracture [Unknown]
  - Injury [Unknown]
  - Pyrexia [Recovered/Resolved]
  - Arthralgia [Unknown]
  - Pain in extremity [Unknown]
  - Irritability [Unknown]
  - Muscle strain [Unknown]
  - COVID-19 [Recovered/Resolved]
  - Ligament sprain [Unknown]
  - School refusal [Unknown]
  - Vomiting [Unknown]
  - Headache [Unknown]
  - Wrong technique in product usage process [Unknown]

NARRATIVE: CASE EVENT DATE: 20220101
